FAERS Safety Report 20208934 (Version 3)
Quarter: 2025Q4

REPORT INFORMATION
  Report Type: Spontaneous
  Country: BR (occurrence: BR)
  Receive Date: 20211220
  Receipt Date: 20251218
  Transmission Date: 20260118
  Serious: Yes (Hospitalization, Other)
  Sender: BIOMARIN
  Company Number: BR-BIOMARINAP-BR-2021-140236

PATIENT
  Age: 23 Year
  Sex: Female

DRUGS (1)
  1. NAGLAZYME [Suspect]
     Active Substance: GALSULFASE
     Indication: Mucopolysaccharidosis VI

REACTIONS (4)
  - Cardiac disorder [Unknown]
  - Bradyarrhythmia [Unknown]
  - Nodal rhythm [Unknown]
  - Infection [Unknown]

NARRATIVE: CASE EVENT DATE: 20211216
